FAERS Safety Report 5086148-X (Version None)
Quarter: 2006Q3

REPORT INFORMATION
  Report Type: 
  Country: None (occurrence: None)
  Receive Date: 20060818
  Receipt Date: 20060807
  Transmission Date: 20061208
  Serious: Yes (Other)
  Sender: FDA-Public Use
  Company Number: 2006092880

PATIENT
  Age: 5 Year
  Sex: Male

DRUGS (4)
  1. AZITHROMYCIN [Suspect]
     Indication: DRUG USE FOR UNKNOWN INDICATION
     Dosage: SEE IMAGE, ORAL
     Route: 048
     Dates: start: 20060728, end: 20060728
  2. AZITHROMYCIN [Suspect]
     Indication: DRUG USE FOR UNKNOWN INDICATION
     Dosage: SEE IMAGE, ORAL
     Route: 048
     Dates: start: 20060729, end: 20060730
  3. ONON (PRANLUKAST) [Concomitant]
  4. CELTECT (OXATOMIDE) [Concomitant]

REACTIONS (3)
  - DELIRIUM [None]
  - DEPRESSED LEVEL OF CONSCIOUSNESS [None]
  - RESTLESSNESS [None]
